FAERS Safety Report 8199378-5 (Version None)
Quarter: 2012Q1

REPORT INFORMATION
  Report Type: 
  Country: None (occurrence: None)
  Receive Date: 20120309
  Receipt Date: 20120306
  Transmission Date: 20120608
  Serious: Yes (Life-Threatening, Hospitalization)
  Sender: FDA-Public Use
  Company Number: GB-ELI_LILLY_AND_COMPANY-GB201203001698

PATIENT
  Age: 66 Year
  Sex: Male
  Weight: 116 kg

DRUGS (5)
  1. EXENATIDE [Suspect]
     Dosage: 10 UG, BID
     Route: 058
     Dates: start: 20110907, end: 20111110
  2. METFORMIN HYDROCHLORIDE [Concomitant]
     Dosage: UNK, UNKNOWN
  3. BENDROFLUMETHIAZIDE [Concomitant]
     Dosage: UNK, UNKNOWN
  4. SIMVASTATIN [Concomitant]
     Dosage: UNK, UNKNOWN
  5. CANDESARTAN CILEXETIL [Concomitant]
     Dosage: UNK, UNKNOWN

REACTIONS (3)
  - RENAL FAILURE ACUTE [None]
  - VOMITING [None]
  - ELECTROLYTE IMBALANCE [None]
